FAERS Safety Report 23109178 (Version 1)
Quarter: 2023Q4

REPORT INFORMATION
  Report Type: Spontaneous
  Country: US (occurrence: None)
  Receive Date: 20231025
  Receipt Date: 20231025
  Transmission Date: 20240110
  Serious: Yes (Other)
  Sender: FDA-Public Use
  Company Number: None

PATIENT
  Sex: 0

DRUGS (2)
  1. SUCRALFATE ORAL SUSPENSION [Suspect]
     Active Substance: SUCRALFATE
     Indication: Gastritis
     Dosage: OTHER QUANTITY : 1 10ML;?
     Route: 048
  2. SUCRALFATE ORAL SUSPENSION [Suspect]
     Active Substance: SUCRALFATE
     Indication: Gastric ulcer

REACTIONS (5)
  - Pain [None]
  - Diarrhoea [None]
  - Vomiting [None]
  - Disability [None]
  - Emotional distress [None]
